FAERS Safety Report 7393601-2 (Version None)
Quarter: 2011Q1

REPORT INFORMATION
  Report Type: 
  Country: None (occurrence: None)
  Receive Date: 20110331
  Receipt Date: 20110331
  Transmission Date: 20110831
  Serious: Yes (Disabling, Other)
  Sender: FDA-Public Use
  Company Number: None

PATIENT
  Sex: Female
  Weight: 54.4316 kg

DRUGS (2)
  1. FOSAMAX [Suspect]
     Indication: OSTEOPENIA
     Dosage: 1/A DAY
     Dates: start: 19990401, end: 20081201
  2. ACTONEL [Suspect]
     Dosage: 1/EVERY 7 DAYS
     Dates: start: 20081201, end: 20101201

REACTIONS (4)
  - ARTHRALGIA [None]
  - OSTEOPOROSIS [None]
  - DIARRHOEA [None]
  - PAIN [None]
